FAERS Safety Report 17888504 (Version 1)
Quarter: 2020Q2

REPORT INFORMATION
  Report Type: Spontaneous
  Country: US (occurrence: US)
  Receive Date: 20200611
  Receipt Date: 20200611
  Transmission Date: 20200714
  Serious: No
  Sender: FDA-Public Use
  Company Number: None

PATIENT
  Age: 80 Year
  Sex: Male
  Weight: 94.01 kg

DRUGS (15)
  1. PROCHLOPERAZINE [Concomitant]
  2. LASIX [Concomitant]
     Active Substance: FUROSEMIDE
  3. PREDNISONE. [Suspect]
     Active Substance: PREDNISONE
     Indication: PROSTATE CANCER
     Route: 048
     Dates: start: 20200312, end: 20200611
  4. LIDODERM [Concomitant]
     Active Substance: LIDOCAINE
  5. CALCITROL [Concomitant]
  6. ABIRATERONE. [Suspect]
     Active Substance: ABIRATERONE ACETATE
     Indication: PROSTATE CANCER
     Route: 048
     Dates: start: 20200312, end: 20200611
  7. SYNTHROID [Concomitant]
     Active Substance: LEVOTHYROXINE SODIUM
  8. ENSURE [Concomitant]
     Active Substance: AMINO ACIDS\DEXTROSE\ELECTROLYTES NOS\SOYBEAN OIL\VITAMINS
  9. NITROGLYCERIN. [Concomitant]
     Active Substance: NITROGLYCERIN
  10. TURMERIC [Concomitant]
     Active Substance: HERBALS\TURMERIC
  11. ASPIRIN. [Concomitant]
     Active Substance: ASPIRIN
  12. FISH OIL [Concomitant]
     Active Substance: FISH OIL
  13. METOPROLOL. [Concomitant]
     Active Substance: METOPROLOL
  14. BENEPROTEIN [Concomitant]
     Active Substance: DIETARY SUPPLEMENT
  15. AMLODIPINE [Concomitant]
     Active Substance: AMLODIPINE BESYLATE

REACTIONS (1)
  - Disease progression [None]

NARRATIVE: CASE EVENT DATE: 20200611
